FAERS Safety Report 15548151 (Version 2)
Quarter: 2018Q4

REPORT INFORMATION
  Report Type: Report from Study
  Country: US (occurrence: US)
  Receive Date: 20181024
  Receipt Date: 20181129
  Transmission Date: 20190205
  Serious: Yes (Hospitalization, Other)
  Sender: FDA-Public Use
  Company Number: US-RETROPHIN, INC.-2018RTN00051

PATIENT
  Age: 7 Month
  Sex: Female
  Weight: 5.9 kg

DRUGS (8)
  1. ALDACTONE [Concomitant]
     Active Substance: SPIRONOLACTONE
  2. VITAMIN D3 [Concomitant]
     Active Substance: CHOLECALCIFEROL
  3. CHOLIC ACID [Suspect]
     Active Substance: CHOLIC ACID
     Indication: SMITH-LEMLI-OPITZ SYNDROME
     Dosage: 100 MG, 1X/DAY
     Dates: start: 20180927, end: 20181006
  4. CHOLIC ACID [Suspect]
     Active Substance: CHOLIC ACID
     Dosage: UNK, UNK
     Dates: start: 2018, end: 201811
  5. LASIX [Concomitant]
     Active Substance: FUROSEMIDE
  6. OCTREOTIDE. [Concomitant]
     Active Substance: OCTREOTIDE
  7. PROTONIX [Concomitant]
     Active Substance: PANTOPRAZOLE SODIUM
  8. VITAMIN A [Concomitant]
     Active Substance: VITAMIN A

REACTIONS (2)
  - Unevaluable event [Not Recovered/Not Resolved]
  - Gastrointestinal haemorrhage [Not Recovered/Not Resolved]

NARRATIVE: CASE EVENT DATE: 20181006
